FAERS Safety Report 9504071 (Version 1)
Quarter: 2013Q3

REPORT INFORMATION
  Report Type: Spontaneous
  Country: US (occurrence: None)
  Receive Date: 20130905
  Receipt Date: 20130905
  Transmission Date: 20140515
  Serious: Yes (Death)
  Sender: FDA-Public Use
  Company Number: None

PATIENT
  Age: 73 Year
  Sex: Female
  Weight: 90 kg

DRUGS (1)
  1. RITUXIMAB [Suspect]
     Indication: NON-HODGKIN^S LYMPHOMA
     Dates: start: 20130814

REACTIONS (5)
  - Anaphylactic reaction [None]
  - Hyperkalaemia [None]
  - Acidosis [None]
  - Renal failure acute [None]
  - Cardiac arrest [None]
